FAERS Safety Report 11318263 (Version 3)
Quarter: 2015Q4

REPORT INFORMATION
  Report Type: Report from Study
  Country: US (occurrence: US)
  Receive Date: 20150728
  Receipt Date: 20151217
  Transmission Date: 20160304
  Serious: No
  Sender: FDA-Public Use
  Company Number: PHEH2015US013747

PATIENT
  Age: 51 Year
  Sex: Female
  Weight: 125 kg

DRUGS (1)
  1. GILENYA [Suspect]
     Active Substance: FINGOLIMOD HYDROCHLORIDE
     Indication: RELAPSING-REMITTING MULTIPLE SCLEROSIS
     Dosage: 0.5 MG, QD
     Route: 048
     Dates: start: 20150711

REACTIONS (5)
  - Viral infection [Unknown]
  - Malaise [Unknown]
  - Heart rate decreased [Recovered/Resolved]
  - White blood cell count decreased [Unknown]
  - Headache [Recovered/Resolved]

NARRATIVE: CASE EVENT DATE: 20150711
